FAERS Safety Report 23087404 (Version 1)
Quarter: 2023Q4

REPORT INFORMATION
  Report Type: Spontaneous
  Country: US (occurrence: US)
  Receive Date: 20231020
  Receipt Date: 20231020
  Transmission Date: 20240109
  Serious: No
  Sender: FDA-Public Use
  Company Number: US-FDC-2023USSPO00775

PATIENT
  Age: 77 Year
  Sex: Female
  Weight: 54.4 kg

DRUGS (2)
  1. TIMOLOL MALEATE [Suspect]
     Active Substance: TIMOLOL MALEATE
     Indication: Intraocular pressure test
     Dosage: ONE DROP IN EACH EYE
     Route: 047
     Dates: end: 2023
  2. LATANOPROST [Concomitant]
     Active Substance: LATANOPROST
     Dosage: 01 DROP EACH EYE
     Route: 047

REACTIONS (1)
  - Vitreous floaters [Not Recovered/Not Resolved]
